FAERS Safety Report 21726376 (Version 1)
Quarter: 2022Q4

REPORT INFORMATION
  Report Type: Spontaneous
  Country: DE (occurrence: DE)
  Receive Date: 20221214
  Receipt Date: 20221214
  Transmission Date: 20230112
  Serious: Yes (Other)
  Sender: FDA-Public Use
  Company Number: DE-BENE-SP_DE_20221027_025

PATIENT
  Age: 82 Year
  Sex: Female

DRUGS (3)
  1. IBUPROFEN [Suspect]
     Active Substance: IBUPROFEN
     Indication: Intervertebral disc protrusion
     Dosage: 3 TO 4 TABLETS TOTAL WITHIN 3 WEEKS
     Route: 048
     Dates: start: 2022, end: 2022
  2. TILIDINE [Suspect]
     Active Substance: TILIDINE
     Indication: Intervertebral disc protrusion
     Dosage: UNKNOWN DOSE FOR 4 DAYS WITHIN 3 WEEKS
     Route: 048
     Dates: start: 2022, end: 2022
  3. ACETAMINOPHEN [Suspect]
     Active Substance: ACETAMINOPHEN
     Indication: Back pain
     Dosage: MAXIMUM 3 TABLETS PER DAY FOR 3 WEEKS
     Route: 048
     Dates: start: 202209, end: 202210

REACTIONS (6)
  - Arrhythmia [Unknown]
  - Heart rate increased [Recovering/Resolving]
  - Cardiovascular disorder [Unknown]
  - Chest pain [Unknown]
  - Chest discomfort [Unknown]
  - Dizziness [Unknown]

NARRATIVE: CASE EVENT DATE: 20221001
